FAERS Safety Report 20735140 (Version 1)
Quarter: 2022Q2

REPORT INFORMATION
  Report Type: Spontaneous
  Country: US (occurrence: None)
  Receive Date: 20220421
  Receipt Date: 20220421
  Transmission Date: 20220721
  Serious: No
  Sender: FDA-Public Use
  Company Number: 2022A126591

PATIENT
  Age: 53 Year
  Sex: Female

DRUGS (2)
  1. FASENRA [Interacting]
     Active Substance: BENRALIZUMAB
     Route: 058
  2. DUPIXENT [Interacting]
     Active Substance: DUPILUMAB

REACTIONS (6)
  - Lip discolouration [Unknown]
  - Cheilitis [Unknown]
  - Mouth ulceration [Unknown]
  - Skin discolouration [Unknown]
  - Drug interaction [Unknown]
  - Product dose omission issue [Unknown]
